FAERS Safety Report 6228844-4 (Version None)
Quarter: 2009Q2

REPORT INFORMATION
  Report Type: 
  Country: None (occurrence: None)
  Receive Date: 20090615
  Receipt Date: 20070607
  Transmission Date: 20091009
  Serious: Yes (Other)
  Sender: FDA-Public Use
  Company Number: US-ASTRAZENECA-2006UW25081

PATIENT
  Age: 21783 Day
  Sex: Female

DRUGS (37)
  1. SEROQUEL [Suspect]
     Indication: INSOMNIA
     Route: 048
     Dates: end: 20070201
  2. SEROQUEL [Suspect]
     Dosage: 200 MG TO 900 MG
     Route: 048
     Dates: start: 20040311
  3. RISPERDAL [Concomitant]
  4. TRILAFON [Concomitant]
  5. GLUCOPHAGE [Concomitant]
     Route: 048
     Dates: start: 20060413
  6. VISTARIL [Concomitant]
     Route: 048
     Dates: start: 20020313
  7. EFFEXOR XR [Concomitant]
     Dosage: 37.5 MG TO 75 MG
     Route: 048
     Dates: start: 20020927
  8. NORVASC [Concomitant]
     Route: 048
     Dates: start: 20040407
  9. LOTENSIN [Concomitant]
     Dosage: 10 MG TO 20 MG
     Route: 048
     Dates: start: 20040407
  10. ALBUTEROL [Concomitant]
     Indication: ASTHMA
     Dates: start: 20030525
  11. TENORMIN [Concomitant]
     Indication: HYPERTENSION
     Route: 048
     Dates: start: 20060413
  12. PREMARIN [Concomitant]
     Route: 048
     Dates: start: 20020313
  13. GLUCOTROL XL [Concomitant]
     Route: 048
     Dates: start: 20040128
  14. SYNTHROID [Concomitant]
     Dosage: 0.100 MG TO 0.125 MG
     Route: 048
     Dates: start: 20020321
  15. PREVACID [Concomitant]
     Route: 048
     Dates: start: 20060413
  16. LAMICTAL [Concomitant]
     Route: 048
     Dates: start: 20060411
  17. ACTOS [Concomitant]
     Route: 048
     Dates: start: 20060413
  18. ROBAXIN [Concomitant]
     Route: 048
     Dates: start: 20060413
  19. BUSPAR [Concomitant]
     Route: 048
     Dates: start: 20060411
  20. MOTRIN [Concomitant]
     Route: 048
     Dates: start: 20060413
  21. BENADRYL [Concomitant]
     Route: 048
     Dates: start: 20060411
  22. PERCOCET [Concomitant]
     Dosage: 5 MG, 325 MG
     Route: 048
     Dates: start: 20060411
  23. BENTYL [Concomitant]
     Route: 048
     Dates: start: 20020321
  24. REGLAN [Concomitant]
     Route: 048
     Dates: start: 20060411
  25. DULCOLAX [Concomitant]
     Route: 054
     Dates: start: 20030213
  26. LANTUS UD [Concomitant]
     Route: 058
     Dates: start: 20060413
  27. NOVOLIN UD [Concomitant]
     Route: 058
     Dates: start: 20060413
  28. PHENERGAN [Concomitant]
     Route: 054
     Dates: start: 20030305
  29. NEXIUM [Concomitant]
     Dates: start: 20021111
  30. LOTREL [Concomitant]
     Indication: HYPERTENSION
     Dosage: 5 MG, 20 MG
     Dates: start: 20040311
  31. CARAFATE [Concomitant]
     Route: 048
     Dates: start: 20041020
  32. ZOCOR [Concomitant]
     Route: 048
     Dates: start: 20030305
  33. LEXAPRO [Concomitant]
     Route: 048
     Dates: start: 20041020
  34. RESTORIL [Concomitant]
     Route: 048
     Dates: start: 20041020
  35. MAALOX [Concomitant]
     Route: 048
     Dates: start: 20041020
  36. MECLIZINE HCL [Concomitant]
     Route: 048
     Dates: start: 20041020
  37. KLONOPIN [Concomitant]
     Route: 048
     Dates: start: 20041020

REACTIONS (3)
  - DIABETES MELLITUS [None]
  - HYPERGLYCAEMIA [None]
  - NEUROPATHY PERIPHERAL [None]
